FAERS Safety Report 7203951-8 (Version None)
Quarter: 2010Q4

REPORT INFORMATION
  Report Type: 
  Country: None (occurrence: None)
  Receive Date: 20101230
  Receipt Date: 20101228
  Transmission Date: 20110411
  Serious: No
  Sender: FDA-Public Use
  Company Number: US-PFIZER INC-2010180648

PATIENT
  Sex: Female
  Weight: 69.841 kg

DRUGS (3)
  1. DETROL LA [Suspect]
     Indication: URINARY INCONTINENCE
     Dosage: 4 MG, 1X/DAY
     Route: 048
     Dates: start: 20101210
  2. SIMVASTATIN [Concomitant]
     Indication: BLOOD CHOLESTEROL
     Dosage: 40 MG, 1X/DAY
  3. TOPROL-XL [Concomitant]
     Indication: HYPERTENSION
     Dosage: 200 MG, 2X/DAY
     Route: 048

REACTIONS (2)
  - BLADDER SPASM [None]
  - MIDDLE INSOMNIA [None]
